FAERS Safety Report 8162068-9 (Version None)
Quarter: 2012Q1

REPORT INFORMATION
  Report Type: 
  Country: None (occurrence: None)
  Receive Date: 20120224
  Receipt Date: 20110621
  Transmission Date: 20120608
  Serious: No
  Sender: FDA-Public Use
  Company Number: US-BRISTOL-MYERS SQUIBB COMPANY-15848773

PATIENT
  Age: 91 Year
  Sex: Female

DRUGS (3)
  1. GLUCOPHAGE [Suspect]
     Route: 065
  2. TORSEMIDE [Suspect]
     Route: 065
  3. AMARYL [Suspect]
     Indication: DIABETES MELLITUS
     Dosage: TABLET
     Route: 048
     Dates: start: 20110101

REACTIONS (6)
  - DYSPHONIA [None]
  - DEHYDRATION [None]
  - BONE PAIN [None]
  - OEDEMA PERIPHERAL [None]
  - PAIN IN EXTREMITY [None]
  - FATIGUE [None]
